FAERS Safety Report 13759350 (Version 1)
Quarter: 2017Q3

REPORT INFORMATION
  Report Type: Report from Study
  Country: BR (occurrence: BR)
  Receive Date: 20170717
  Receipt Date: 20170717
  Transmission Date: 20171127
  Serious: Yes (Other)
  Sender: FDA-Public Use
  Company Number: BR-ELI_LILLY_AND_COMPANY-BR201611002748

PATIENT
  Sex: Female

DRUGS (2)
  1. TERIPARATIDE [Suspect]
     Active Substance: TERIPARATIDE
     Indication: OSTEOPOROSIS
     Dosage: UNK, UNKNOWN
     Route: 065
  2. TIOTROPIUM BROMIDE [Interacting]
     Active Substance: TIOTROPIUM BROMIDE
     Indication: FATIGUE
     Dosage: UNK, UNKNOWN
     Route: 065

REACTIONS (10)
  - Drug interaction [Unknown]
  - Cough [Unknown]
  - Arthralgia [Unknown]
  - Emphysema [Unknown]
  - Osteoarthritis [Unknown]
  - Pain in extremity [Unknown]
  - Drug ineffective [Unknown]
  - Fatigue [Unknown]
  - Spinal pain [Unknown]
  - Bone pain [Unknown]
